FAERS Safety Report 25985784 (Version 2)
Quarter: 2025Q4

REPORT INFORMATION
  Report Type: Spontaneous
  Country: CN (occurrence: CN)
  Receive Date: 20251031
  Receipt Date: 20251104
  Transmission Date: 20260118
  Serious: Yes (Other)
  Sender: SANDOZ
  Company Number: CN-002147023-NVSC2025CN164862

PATIENT
  Age: 79 Year
  Sex: Female
  Weight: 51 kg

DRUGS (2)
  1. DEXAMETHASONE\TOBRAMYCIN [Suspect]
     Active Substance: DEXAMETHASONE\TOBRAMYCIN
     Indication: Keratitis
     Dosage: UNK, TID (1 INJECTION)
     Route: 047
     Dates: start: 20250805, end: 20251009
  2. GANCICLOVIR [Concomitant]
     Active Substance: GANCICLOVIR
     Indication: Keratitis
     Dosage: UNK, QID (1 INJECTION)
     Route: 047
     Dates: start: 20250822, end: 20251009

REACTIONS (19)
  - Keratitis fungal [Unknown]
  - Eye pain [Recovering/Resolving]
  - Meibomian gland dysfunction [Unknown]
  - Conjunctival hyperaemia [Unknown]
  - Ocular discomfort [Recovering/Resolving]
  - Corneal infiltrates [Recovering/Resolving]
  - Corneal opacity [Unknown]
  - Corneal oedema [Recovering/Resolving]
  - Dry eye [Recovering/Resolving]
  - Corneal lesion [Recovering/Resolving]
  - Eye disorder [Unknown]
  - Eye swelling [Recovering/Resolving]
  - Eye opacity [Unknown]
  - Tongue erythema [Unknown]
  - Tongue discolouration [Unknown]
  - Dry mouth [Unknown]
  - Faeces hard [Unknown]
  - Heart rate increased [Unknown]
  - Off label use [Unknown]

NARRATIVE: CASE EVENT DATE: 20250805
